FAERS Safety Report 24829470 (Version 4)
Quarter: 2025Q2

REPORT INFORMATION
  Report Type: Spontaneous
  Country: US (occurrence: US)
  Receive Date: 20250110
  Receipt Date: 20250521
  Transmission Date: 20250717
  Serious: No
  Sender: LEO PHARM
  Company Number: US-LEO Pharma-376729

PATIENT
  Age: 72 Year
  Sex: Female

DRUGS (1)
  1. ADBRY [Suspect]
     Active Substance: TRALOKINUMAB-LDRM
     Indication: Dermatitis atopic
     Dosage: TREATMENT IS ONGOING
     Dates: start: 202410

REACTIONS (8)
  - Eye allergy [Unknown]
  - Dry eye [Unknown]
  - Hypersensitivity [Unknown]
  - Eye pruritus [Unknown]
  - Pruritus [Unknown]
  - Drug ineffective [Unknown]
  - Dermatitis [Unknown]
  - Fatigue [Unknown]
